FAERS Safety Report 7104283-9 (Version None)
Quarter: 2010Q4

REPORT INFORMATION
  Report Type: 
  Country: None (occurrence: None)
  Receive Date: 20101115
  Receipt Date: 20100929
  Transmission Date: 20110411
  Serious: No
  Sender: FDA-Public Use
  Company Number: US-ALLERGAN-1007928US

PATIENT
  Age: 38 Year
  Sex: Female
  Weight: 63.492 kg

DRUGS (1)
  1. BOTOX COSMETIC [Suspect]
     Indication: SKIN WRINKLING
     Dosage: 35 UNITS, SINGLE
     Dates: start: 20100616, end: 20100616

REACTIONS (1)
  - DYSPHONIA [None]
